FAERS Safety Report 6180337-9 (Version None)
Quarter: 2009Q2

REPORT INFORMATION
  Report Type: 
  Country: None (occurrence: None)
  Receive Date: 20090504
  Receipt Date: 20090504
  Transmission Date: 20091009
  Serious: Yes (Other)
  Sender: FDA-Public Use
  Company Number: None

PATIENT
  Age: 59 Year
  Sex: Male
  Weight: 79.3795 kg

DRUGS (1)
  1. ZOLPIDEM [Suspect]
     Indication: INSOMNIA
     Dosage: 10MG 1 NIGHTLY PO
     Route: 048
     Dates: start: 20080101, end: 20090501

REACTIONS (3)
  - AMNESIA [None]
  - DRUG INTERACTION [None]
  - INCOHERENT [None]
